FAERS Safety Report 5963775-6 (Version None)
Quarter: 2008Q4

REPORT INFORMATION
  Report Type: 
  Country: None (occurrence: None)
  Receive Date: 20081121
  Receipt Date: 20081121
  Transmission Date: 20090506
  Serious: Yes (Life-Threatening, Hospitalization)
  Sender: FDA-Public Use
  Company Number: None

PATIENT
  Sex: Male
  Weight: 81.6475 kg

DRUGS (1)
  1. CYMBALTA [Suspect]
     Indication: DEPRESSION
     Dosage: 60 MG DAILY PO
     Route: 048

REACTIONS (8)
  - FALL [None]
  - FRACTURE [None]
  - HEAD INJURY [None]
  - IMPAIRED HEALING [None]
  - JUDGEMENT IMPAIRED [None]
  - SKULL FRACTURE [None]
  - STRABISMUS [None]
  - VISUAL IMPAIRMENT [None]
